FAERS Safety Report 7619283-X (Version None)
Quarter: 2011Q3

REPORT INFORMATION
  Report Type: 
  Country: None (occurrence: None)
  Receive Date: 20110718
  Receipt Date: 20110709
  Transmission Date: 20111222
  Serious: No
  Sender: FDA-Public Use
  Company Number: US-B.I. PHARMACEUTICALS,INC./RIDGEFIELD-2010-BP-12939BP

PATIENT
  Sex: Female

DRUGS (4)
  1. PRADAXA [Suspect]
     Indication: ATRIAL FIBRILLATION
     Dosage: 300 MG
     Route: 048
     Dates: start: 20101114
  2. CARDIA [Concomitant]
     Indication: HYPERTENSION
     Dates: start: 20101101
  3. DILTIZEM ER [Concomitant]
     Indication: HYPERTENSION
     Dosage: 180 MG
     Dates: start: 20010101
  4. LIPITOR [Concomitant]
     Indication: UNEVALUABLE EVENT
     Dates: start: 20010101

REACTIONS (2)
  - NASOPHARYNGITIS [None]
  - DIZZINESS [None]
